FAERS Safety Report 14382373 (Version 1)
Quarter: 2018Q1

REPORT INFORMATION
  Report Type: Spontaneous
  Country: US (occurrence: US)
  Receive Date: 20180112
  Receipt Date: 20180112
  Transmission Date: 20180509
  Serious: No
  Sender: FDA-Public Use
  Company Number: US-PERRIGO-17US026852

PATIENT
  Sex: Male
  Weight: 86.17 kg

DRUGS (4)
  1. IBUPROFEN. [Suspect]
     Active Substance: IBUPROFEN
     Indication: PAIN
     Dosage: 800 MG, SINGLE
     Route: 048
     Dates: start: 2017, end: 2017
  2. IBUPROFEN. [Suspect]
     Active Substance: IBUPROFEN
     Dosage: 800 MG, SINGLE
     Route: 048
     Dates: start: 20170913, end: 20170913
  3. IBUPROFEN. [Suspect]
     Active Substance: IBUPROFEN
     Dosage: 800 MG, SINGLE
     Route: 048
     Dates: start: 201706, end: 201706
  4. LIPITOR [Concomitant]
     Active Substance: ATORVASTATIN CALCIUM
     Indication: BLOOD CHOLESTEROL INCREASED
     Dosage: UNKNOWN, UNKNOWN
     Route: 048
     Dates: start: 2015

REACTIONS (3)
  - Lip swelling [Recovered/Resolved]
  - Incorrect dose administered [Recovered/Resolved]
  - Hypoaesthesia oral [Recovered/Resolved]

NARRATIVE: CASE EVENT DATE: 2017
